FAERS Safety Report 8921279 (Version 1)
Quarter: 2012Q4

REPORT INFORMATION
  Report Type: 
  Country: US (occurrence: US)
  Receive Date: 20121123
  Receipt Date: 20121123
  Transmission Date: 20130627
  Serious: No
  Sender: FDA-Public Use
  Company Number: US-BAYER-2012-122287

PATIENT
  Age: 91 Year
  Sex: Female
  Weight: 60.77 kg

DRUGS (3)
  1. ALEVE CAPLET/TABLET,MIDOL EXTENDED RELIEF CAPLET [Suspect]
     Indication: HEADACHE
     Dosage: 1 DF, BID with food
     Route: 048
     Dates: start: 20121113, end: 20121113
  2. LEVOTHYROXINE [Concomitant]
  3. METOPROLOL TARTRATE [Concomitant]

REACTIONS (3)
  - Abdominal discomfort [Recovered/Resolved]
  - Diarrhoea [Recovered/Resolved]
  - Abdominal pain upper [Recovered/Resolved]
